FAERS Safety Report 8803095 (Version 2)
Quarter: 2012Q4

REPORT INFORMATION
  Report Type: 
  Country: BR (occurrence: BR)
  Receive Date: 20120924
  Receipt Date: 20120927
  Transmission Date: 20130627
  Serious: Yes (Hospitalization)
  Sender: FDA-Public Use
  Company Number: PHHO2012BR004869

PATIENT
  Age: 62 Year
  Sex: Female
  Weight: 67 kg

DRUGS (8)
  1. AFINITOR [Suspect]
     Indication: BREAST CANCER
     Dosage: 5 mg, UNK
     Route: 048
     Dates: start: 20110823, end: 20120128
  2. AFINITOR [Suspect]
     Dosage: 5 mg, UNK
     Route: 048
     Dates: start: 20120215
  3. COMPARATOR PACLITAXEL [Suspect]
     Indication: BREAST CANCER
     Dosage: 80 mg/m2, on Day 1, 8 and 15 of each cycle
     Dates: start: 20110823, end: 20120123
  4. COMPARATOR TRASTUZUMAB [Suspect]
     Indication: BREAST CANCER
     Dosage: 2 mg/kg, QW (139.2  mg)
     Route: 042
     Dates: start: 20110823, end: 20120123
  5. COMPARATOR TRASTUZUMAB [Suspect]
     Dosage: 2 mg/kg, QW  (139.2  mg)
     Route: 042
     Dates: start: 20120213, end: 20120911
  6. CAPTOPRIL [Concomitant]
     Indication: HYPERTENSION
     Dosage: 25 mg, UNK
     Route: 048
     Dates: start: 1974
  7. PROPRANOLOL [Concomitant]
     Indication: BREAST CANCER
     Dosage: 40 mg, UNK
     Route: 048
     Dates: start: 1974
  8. HYDROCHLOROTHIAZIDE [Concomitant]
     Indication: HYPERTENSION
     Dosage: 25 mg, UNK
     Route: 048
     Dates: start: 1974

REACTIONS (12)
  - Leukopenia [Recovered/Resolved]
  - Urinary tract infection [Recovered/Resolved]
  - Diplopia [Recovered/Resolved]
  - Headache [Recovered/Resolved]
  - Hypocalcaemia [Recovered/Resolved]
  - Thrombocytopenia [None]
  - Febrile neutropenia [None]
  - Diarrhoea [None]
  - Escherichia urinary tract infection [None]
  - Hypokalaemia [None]
  - Strabismus [None]
  - Central nervous system lesion [None]
